FAERS Safety Report 7744652-7 (Version None)
Quarter: 2011Q3

REPORT INFORMATION
  Report Type: 
  Country: None (occurrence: None)
  Receive Date: 20110912
  Receipt Date: 20110906
  Transmission Date: 20111222
  Serious: Yes (Other)
  Sender: FDA-Public Use
  Company Number: PHEH2011US03590

PATIENT
  Sex: Female
  Weight: 80.49 kg

DRUGS (1)
  1. EXJADE [Suspect]
     Indication: SICKLE CELL ANAEMIA
     Dosage: 500 MG, QOD
     Dates: start: 20091101

REACTIONS (2)
  - ABDOMINAL DISCOMFORT [None]
  - RENAL FAILURE CHRONIC [None]
